FAERS Safety Report 10085648 (Version 2)
Quarter: 2014Q2

REPORT INFORMATION
  Report Type: Report from Study
  Country: US (occurrence: US)
  Receive Date: 20140418
  Receipt Date: 20140430
  Transmission Date: 20141212
  Serious: Yes (Hospitalization)
  Sender: FDA-Public Use
  Company Number: US-JNJFOC-20140408747

PATIENT
  Age: 13 Year
  Sex: Female
  Weight: 36.6 kg

DRUGS (6)
  1. REMICADE [Suspect]
     Indication: INFLAMMATORY BOWEL DISEASE
     Route: 042
     Dates: start: 20110825
  2. REMICADE [Suspect]
     Indication: INFLAMMATORY BOWEL DISEASE
     Route: 042
     Dates: end: 20110908
  3. IRON [Concomitant]
     Route: 065
  4. VITAMIN D [Concomitant]
     Route: 065
  5. PREDNISONE [Concomitant]
     Route: 065
  6. HUMIRA [Concomitant]
     Route: 065
     Dates: start: 20120111

REACTIONS (1)
  - Crohn^s disease [Recovered/Resolved]
